FAERS Safety Report 17499282 (Version 1)
Quarter: 2020Q1

REPORT INFORMATION
  Report Type: Spontaneous
  Country: GB (occurrence: GB)
  Receive Date: 20200304
  Receipt Date: 20200304
  Transmission Date: 20200409
  Serious: Yes (Other)
  Sender: FDA-Public Use
  Company Number: GB-OTSUKA-2020_006030

PATIENT
  Age: 71 Year
  Sex: Female

DRUGS (8)
  1. ABILIFY [Suspect]
     Active Substance: ARIPIPRAZOLE
     Indication: SCHIZOPHRENIA
     Dosage: 25 MG, UNK
     Route: 065
  2. ABILIFY [Suspect]
     Active Substance: ARIPIPRAZOLE
     Dosage: 10 MG, UNK
     Route: 065
     Dates: start: 201810
  3. ABILIFY [Suspect]
     Active Substance: ARIPIPRAZOLE
     Dosage: 20 MG, UNK
     Route: 065
     Dates: start: 201808
  4. ABILIFY [Suspect]
     Active Substance: ARIPIPRAZOLE
     Dosage: 15 MG, UNK
     Route: 065
  5. ABILIFY [Suspect]
     Active Substance: ARIPIPRAZOLE
     Dosage: 25 MG, UNK
     Route: 048
  6. ABILIFY [Suspect]
     Active Substance: ARIPIPRAZOLE
     Dosage: 15 MG, UNK
     Route: 065
     Dates: start: 20170417
  7. ABILIFY MAINTENA [Suspect]
     Active Substance: ARIPIPRAZOLE
     Indication: SCHIZOPHRENIA
     Dosage: UNK
     Route: 065
     Dates: start: 201707
  8. ABILIFY [Suspect]
     Active Substance: ARIPIPRAZOLE
     Dosage: 20 MG, UNK
     Route: 065

REACTIONS (12)
  - Autoimmune disorder [Unknown]
  - Gait disturbance [Unknown]
  - Surgery [Unknown]
  - Muscular weakness [Unknown]
  - Dyskinesia [Unknown]
  - Loss of personal independence in daily activities [Unknown]
  - Abdominal pain [Unknown]
  - Restless legs syndrome [Unknown]
  - Weight increased [Unknown]
  - Therapy cessation [Unknown]
  - Sciatic nerve injury [Unknown]
  - Pain [Unknown]
